FAERS Safety Report 14812944 (Version 1)
Quarter: 2018Q2

REPORT INFORMATION
  Report Type: Spontaneous
  Country: FR (occurrence: FR)
  Receive Date: 20180426
  Receipt Date: 20180426
  Transmission Date: 20180711
  Serious: Yes (Hospitalization)
  Sender: FDA-Public Use
  Company Number: FR-MERCK KGAA-2046532

PATIENT
  Age: 66 Year

DRUGS (1)
  1. NOVOTHYROX [Suspect]
     Active Substance: LEVOTHYROXINE SODIUM
     Indication: POST PROCEDURAL HYPOTHYROIDISM

REACTIONS (13)
  - Arrhythmia [None]
  - Anxiety [None]
  - Loss of personal independence in daily activities [None]
  - Thyroxine free increased [None]
  - Malaise [None]
  - Arthralgia [None]
  - Social avoidant behaviour [None]
  - Headache [None]
  - Fatigue [None]
  - Thyroglobulin decreased [None]
  - Depression [None]
  - Blood thyroid stimulating hormone abnormal [None]
  - Insomnia [None]

NARRATIVE: CASE EVENT DATE: 20170324
